FAERS Safety Report 9180092 (Version 1)
Quarter: 2012Q4

REPORT INFORMATION
  Report Type: 
  Country: CH (occurrence: CH)
  Receive Date: 20121029
  Receipt Date: 20121029
  Transmission Date: 20130627
  Serious: Yes (Hospitalization)
  Sender: FDA-Public Use
  Company Number: CH-TEVA-366355ISR

PATIENT
  Age: 47 Year
  Sex: Female

DRUGS (2)
  1. METHOTREXATE [Suspect]
     Indication: GESTATIONAL TROPHOBLASTIC TUMOUR
     Dosage: 14-day cycle, on days 1, 3, 5 and 7
     Route: 030
  2. FOLINIC ACID [Concomitant]
     Indication: GESTATIONAL TROPHOBLASTIC TUMOUR
     Route: 048

REACTIONS (2)
  - Peritonitis [Recovered/Resolved]
  - Stomatitis [Unknown]
